FAERS Safety Report 7942350-8 (Version None)
Quarter: 2011Q4

REPORT INFORMATION
  Report Type: 
  Country: None (occurrence: None)
  Receive Date: 20111128
  Receipt Date: 20111118
  Transmission Date: 20120403
  Serious: Yes (Other)
  Sender: FDA-Public Use
  Company Number: AU-GLAXOSMITHKLINE-B0765079A

PATIENT
  Sex: Female

DRUGS (2)
  1. NICOTINE [Suspect]
     Indication: EX-TOBACCO USER
     Route: 062
     Dates: start: 20111110, end: 20111117
  2. NICOTINE [Suspect]
     Indication: EX-TOBACCO USER
     Route: 062
     Dates: start: 20110301

REACTIONS (5)
  - CARDIAC MURMUR [None]
  - HEART VALVE INCOMPETENCE [None]
  - PALPITATIONS [None]
  - DIZZINESS [None]
  - VOMITING [None]
